FAERS Safety Report 6273367-X (Version None)
Quarter: 2009Q3

REPORT INFORMATION
  Report Type: 
  Country: None (occurrence: None)
  Receive Date: 20090715
  Receipt Date: 20090630
  Transmission Date: 20100115
  Serious: Yes (Other)
  Sender: FDA-Public Use
  Company Number: 001092

PATIENT
  Sex: Male

DRUGS (1)
  1. NEUPRO [Suspect]
     Dosage: (TRANSDERMAL),  (2 MG TRANSDERMAL)
     Route: 062
     Dates: start: 20080301

REACTIONS (4)
  - APPLICATION SITE IRRITATION [None]
  - DEVICE ADHESION ISSUE [None]
  - DRUG DELIVERY SYSTEM MALFUNCTION [None]
  - RASH MACULAR [None]
